FAERS Safety Report 8380626-3 (Version None)
Quarter: 2012Q2

REPORT INFORMATION
  Report Type: 
  Country: None (occurrence: None)
  Receive Date: 20120511
  Receipt Date: 20120430
  Transmission Date: 20120825
  Serious: Yes (Other)
  Sender: FDA-Public Use
  Company Number: 2012032191

PATIENT
  Age: 36 Year
  Sex: Female
  Weight: 72.5755 kg

DRUGS (5)
  1. BENADRYL [Concomitant]
  2. HIZENTRA [Suspect]
     Indication: IMMUNODEFICIENCY COMMON VARIABLE
     Dosage: SEE IMAGE
     Route: 058
     Dates: start: 20111001, end: 20111201
  3. HIZENTRA [Suspect]
     Indication: IMMUNODEFICIENCY COMMON VARIABLE
     Dosage: SEE IMAGE
     Route: 058
     Dates: start: 20111001, end: 20111201
  4. HIZENTRA [Suspect]
     Indication: IMMUNODEFICIENCY COMMON VARIABLE
     Dosage: SEE IMAGE
     Route: 058
     Dates: start: 20111204, end: 20111201
  5. ACETAMINOPHEN [Concomitant]

REACTIONS (12)
  - VISION BLURRED [None]
  - TRANSIENT ISCHAEMIC ATTACK [None]
  - APHASIA [None]
  - BALANCE DISORDER [None]
  - BLOOD PRESSURE DECREASED [None]
  - INFUSION RELATED REACTION [None]
  - BLOOD PRESSURE INCREASED [None]
  - THINKING ABNORMAL [None]
  - MOBILITY DECREASED [None]
  - HYPERSENSITIVITY [None]
  - MIGRAINE [None]
  - SPEECH DISORDER [None]
